FAERS Safety Report 4276860-4 (Version None)
Quarter: 2004Q1

REPORT INFORMATION
  Report Type: 
  Country: None (occurrence: None)
  Receive Date: 20040120
  Receipt Date: 20040108
  Transmission Date: 20041129
  Serious: Yes (Death, Hospitalization)
  Sender: FDA-Public Use
  Company Number: 2004193692GB

PATIENT
  Age: 69 Year
  Sex: Male

DRUGS (14)
  1. CELEBREX [Suspect]
     Indication: PAIN
     Dosage: 100 MG,  ORAL
     Route: 048
     Dates: start: 20030827
  2. ARCOXIA [Suspect]
     Indication: PAIN IN EXTREMITY
     Dosage: 60 MG, BID, ORAL
     Route: 048
     Dates: start: 20031118
  3. DICLOFENAC SODIUM [Suspect]
     Dosage: 50 MG, TID, ORAL
     Route: 048
     Dates: start: 19980529, end: 20031118
  4. PAROXETINE HCL [Suspect]
     Indication: DEPRESSION
     Dosage: 30 MG, ORAL
     Route: 048
     Dates: start: 20000126
  5. DIPYRIDAMOLE [Suspect]
     Dosage: BID, ORAL
     Route: 048
     Dates: start: 19990917
  6. ACETAMINOPHEN [Concomitant]
  7. PHENYTOIN [Concomitant]
  8. RAMIPRIL [Concomitant]
  9. TEMAZEPAM [Concomitant]
  10. XATRAL (ALFUZOSIN) [Concomitant]
  11. DOMPERIDONE (DOMPERIDONE) [Concomitant]
  12. DILTIAZEM [Concomitant]
  13. MONOMAX [Concomitant]
  14. CO-CODAMOL [Concomitant]

REACTIONS (2)
  - GASTROINTESTINAL HAEMORRHAGE [None]
  - HAEMOGLOBIN DECREASED [None]
